FAERS Safety Report 6926768-8 (Version None)
Quarter: 2010Q3

REPORT INFORMATION
  Report Type: 
  Country: None (occurrence: None)
  Receive Date: 20100816
  Receipt Date: 20100603
  Transmission Date: 20110219
  Serious: No
  Sender: FDA-Public Use
  Company Number: US-ABBOTT-10P-163-0649661-00

PATIENT
  Weight: 113.5 kg

DRUGS (2)
  1. SIMCOR [Suspect]
     Indication: BLOOD TRIGLYCERIDES INCREASED
     Dosage: 1000/20MG AT BED TIME
     Route: 048
     Dates: start: 20100101, end: 20100201
  2. BENICAR [Concomitant]
     Indication: HYPERTENSION

REACTIONS (1)
  - ARTHRALGIA [None]
